FAERS Safety Report 6791177-1 (Version None)
Quarter: 2010Q2

REPORT INFORMATION
  Report Type: 
  Country: None (occurrence: None)
  Receive Date: 20100624
  Receipt Date: 20100611
  Transmission Date: 20101027
  Serious: Yes (Other)
  Sender: FDA-Public Use
  Company Number: ES-ELI_LILLY_AND_COMPANY-ES201006003535

PATIENT
  Sex: Female
  Weight: 76 kg

DRUGS (10)
  1. FORTEO [Suspect]
     Indication: OSTEOPOROSIS
     Dosage: 20 UG, DAILY (1/D)
     Route: 058
     Dates: start: 20100301
  2. OMEPRAZOLE [Concomitant]
     Dosage: 40 MG, DAILY (1/D)
     Route: 048
  3. BIPRETERAX [Concomitant]
     Indication: HYPERTENSION
     Dosage: 5 MG, DAILY (1/D)
     Route: 048
  4. PARACETAMOL [Concomitant]
     Indication: PAIN
     Dosage: 1 G, EVERY 8 HRS
     Route: 048
  5. NATECAL D [Concomitant]
     Indication: OSTEOPOROSIS
     Dosage: 1500 MG, 2/D
     Route: 048
  6. NASONEX [Concomitant]
     Indication: ASTHMA
     Dosage: 50 MG, DAILY (1/D)
     Route: 045
  7. ANASMA [Concomitant]
     Dosage: 250 MG, EVERY 8 HRS
     Route: 055
  8. SALBUTAMOL [Concomitant]
     Indication: ASTHMA
     Dosage: 1000 MG, AS NEEDED
     Route: 055
  9. NOLOTIL [Concomitant]
     Indication: PAIN
     Dosage: 575 MG, OTHER
     Route: 048
  10. ZOLPIDEM [Concomitant]
     Indication: SLEEP DISORDER
     Dosage: 10 MG, DAILY (1/D)
     Route: 048

REACTIONS (1)
  - SPINAL FRACTURE [None]
